FAERS Safety Report 5954035-8 (Version None)
Quarter: 2008Q4

REPORT INFORMATION
  Report Type: 
  Country: None (occurrence: None)
  Receive Date: 20081114
  Receipt Date: 20081103
  Transmission Date: 20090506
  Serious: Yes (Other)
  Sender: FDA-Public Use
  Company Number: HU-PFIZER INC-2008095204

PATIENT
  Sex: Female

DRUGS (1)
  1. ALPRAZOLAM [Suspect]

REACTIONS (3)
  - ABORTION INDUCED [None]
  - INTENTIONAL OVERDOSE [None]
  - SUICIDE ATTEMPT [None]
